FAERS Safety Report 7866903-0 (Version None)
Quarter: 2011Q4

REPORT INFORMATION
  Report Type: 
  Country: None (occurrence: None)
  Receive Date: 20111028
  Receipt Date: 20111021
  Transmission Date: 20120403
  Serious: Yes (Other)
  Sender: FDA-Public Use
  Company Number: US-ABBOTT-11P-163-0842793-00

PATIENT
  Sex: Female
  Weight: 59.02 kg

DRUGS (9)
  1. HUMIRA [Suspect]
     Indication: PSORIASIS
     Dates: start: 20100601, end: 20101001
  2. ATENOLOL [Concomitant]
     Indication: BLOOD PRESSURE ABNORMAL
  3. LISINOPRIL [Concomitant]
     Indication: PRODUCT USED FOR UNKNOWN INDICATION
  4. DEPO-MEDROL [Concomitant]
     Indication: PRODUCT USED FOR UNKNOWN INDICATION
  5. HUMIRA [Suspect]
     Indication: PSORIATIC ARTHROPATHY
     Dates: start: 20110601
  6. AMLODIPINE [Concomitant]
     Indication: BLOOD PRESSURE ABNORMAL
  7. VITAMIN B-12 [Concomitant]
     Indication: PRODUCT USED FOR UNKNOWN INDICATION
  8. CA WITH VIT D [Concomitant]
     Indication: PRODUCT USED FOR UNKNOWN INDICATION
  9. LOVAZA [Concomitant]
     Indication: PRODUCT USED FOR UNKNOWN INDICATION

REACTIONS (14)
  - SKIN EXFOLIATION [None]
  - PAIN IN EXTREMITY [None]
  - PAIN [None]
  - SQUAMOUS CELL CARCINOMA OF SKIN [None]
  - HAND DEFORMITY [None]
  - ERYTHEMA [None]
  - GRIP STRENGTH DECREASED [None]
  - PSORIATIC ARTHROPATHY [None]
  - INFECTION [None]
  - DRUG DOSE OMISSION [None]
  - IMPAIRED HEALING [None]
  - PSORIASIS [None]
  - RADIATION SKIN INJURY [None]
  - ARTHRALGIA [None]
